FAERS Safety Report 5742652-X (Version None)
Quarter: 2008Q2

REPORT INFORMATION
  Report Type: 
  Country: None (occurrence: None)
  Receive Date: 20080519
  Receipt Date: 20080508
  Transmission Date: 20081010
  Serious: Yes (Other)
  Sender: FDA-Public Use
  Company Number: US-BAYER-200822233NA

PATIENT
  Age: 2 Year
  Sex: Female

DRUGS (3)
  1. MAGNEVIST [Suspect]
     Indication: NUCLEAR MAGNETIC RESONANCE IMAGING BRAIN
     Route: 042
     Dates: start: 20080415, end: 20080415
  2. PROPOFOL [Concomitant]
     Indication: ANAESTHESIA
     Dates: start: 20080415, end: 20080415
  3. BENADRYL [Concomitant]
     Dosage: TOTAL DAILY DOSE: 12.5 MG
     Route: 048
     Dates: start: 20080415, end: 20080415

REACTIONS (3)
  - OXYGEN SATURATION DECREASED [None]
  - RESPIRATORY DISTRESS [None]
  - WHEEZING [None]
